FAERS Safety Report 5634694-X (Version None)
Quarter: 2008Q1

REPORT INFORMATION
  Report Type: 
  Country: None (occurrence: None)
  Receive Date: 20080222
  Receipt Date: 20080218
  Transmission Date: 20080703
  Serious: Yes (Life-Threatening)
  Sender: FDA-Public Use
  Company Number: FR-ASTRAZENECA-2008CG00269

PATIENT
  Age: 34 Year
  Sex: Female

DRUGS (2)
  1. ZOMIGORO [Suspect]
     Indication: MIGRAINE
     Dosage: THREE TO SIX TABLETS PER MONTH
     Route: 048
  2. GESTODENE AND ETHINYL ESTRADIOL [Suspect]
     Indication: CONTRACEPTION
     Route: 048
     Dates: end: 20070401

REACTIONS (1)
  - ISCHAEMIC STROKE [None]
